FAERS Safety Report 4887963-5 (Version None)
Quarter: 2006Q1

REPORT INFORMATION
  Report Type: 
  Country: None (occurrence: None)
  Receive Date: 20060119
  Receipt Date: 20060105
  Transmission Date: 20060701
  Serious: Yes (Hospitalization)
  Sender: FDA-Public Use
  Company Number: 2006SS000001

PATIENT
  Age: 10 Year
  Sex: Male
  Weight: 23.3602 kg

DRUGS (7)
  1. MYOBLOC [Suspect]
     Indication: MUSCLE SPASTICITY
     Dosage: SEE IMAGE
     Route: 030
     Dates: start: 20050721, end: 20050721
  2. MYOBLOC [Suspect]
     Indication: MUSCLE SPASTICITY
     Dosage: SEE IMAGE
     Route: 030
     Dates: start: 20051128, end: 20051128
  3. BACLOFEN [Concomitant]
  4. ZANAFLEX [Concomitant]
  5. VALIUM [Concomitant]
  6. PREVACID [Concomitant]
  7. ZANAFLEX [Concomitant]

REACTIONS (5)
  - BOTULISM [None]
  - DYSPNOEA [None]
  - INFLUENZA [None]
  - OFF LABEL USE [None]
  - TONSILLAR HYPERTROPHY [None]
